FAERS Safety Report 24982404 (Version 1)
Quarter: 2025Q1

REPORT INFORMATION
  Report Type: Spontaneous
  Country: GB (occurrence: GB)
  Receive Date: 20250218
  Receipt Date: 20250218
  Transmission Date: 20250409
  Serious: Yes (Other)
  Sender: MAYNE
  Company Number: GB-MAYNE PHARMA-2025MYN000072

PATIENT

DRUGS (4)
  1. SOLTAMOX [Suspect]
     Active Substance: TAMOXIFEN CITRATE
     Indication: Neuroendocrine carcinoma
     Route: 065
     Dates: start: 2013
  2. SOLTAMOX [Suspect]
     Active Substance: TAMOXIFEN CITRATE
     Indication: Hormone receptor positive breast cancer
  3. TRIPTORELIN PAMOATE [Suspect]
     Active Substance: TRIPTORELIN PAMOATE
     Indication: Neuroendocrine carcinoma
     Route: 065
  4. TRIPTORELIN PAMOATE [Suspect]
     Active Substance: TRIPTORELIN PAMOATE
     Indication: Hormone receptor positive breast cancer

REACTIONS (2)
  - Neuroendocrine carcinoma metastatic [Unknown]
  - Neuroendocrine breast tumour [Unknown]

NARRATIVE: CASE EVENT DATE: 20150101
